FAERS Safety Report 6780078-0 (Version None)
Quarter: 2010Q2

REPORT INFORMATION
  Report Type: 
  Country: None (occurrence: None)
  Receive Date: 20100618
  Receipt Date: 20100607
  Transmission Date: 20101027
  Serious: Yes (Hospitalization)
  Sender: FDA-Public Use
  Company Number: DE-ELI_LILLY_AND_COMPANY-DE201006003094

PATIENT
  Age: 25 Year
  Sex: Male

DRUGS (4)
  1. ZYPREXA [Suspect]
     Indication: PERSONALITY DISORDER
     Dosage: 20 MG, UNK
     Route: 048
     Dates: start: 20090915
  2. TRUXAL /00012102/ [Concomitant]
     Dosage: 100 MG, UNK
     Route: 048
     Dates: start: 20090830
  3. ERGENYL [Concomitant]
     Dosage: 300 MG, UNK
     Route: 048
     Dates: start: 20090902
  4. LORAZEPAM [Concomitant]
     Dosage: 3 MG, UNK
     Dates: start: 20100303

REACTIONS (5)
  - DEPRESSION [None]
  - HALLUCINATION [None]
  - OFF LABEL USE [None]
  - SUICIDAL IDEATION [None]
  - WEIGHT INCREASED [None]
